FAERS Safety Report 16208420 (Version 1)
Quarter: 2019Q2

REPORT INFORMATION
  Report Type: Spontaneous
  Country: US (occurrence: US)
  Receive Date: 20190417
  Receipt Date: 20190417
  Transmission Date: 20190711
  Serious: No
  Sender: FDA-Public Use
  Company Number: US-SHIRE-US201912502

PATIENT
  Sex: Female

DRUGS (1)
  1. GAMMAGARD LIQUID [Suspect]
     Active Substance: HUMAN IMMUNOGLOBULIN G
     Indication: ENCEPHALITIS AUTOIMMUNE
     Dosage: 2 GRAM PER KILOGRAM, EVERY 8 WK
     Route: 042

REACTIONS (3)
  - Off label use [Unknown]
  - Headache [Recovering/Resolving]
  - Nausea [Unknown]
